FAERS Safety Report 20708892 (Version 2)
Quarter: 2022Q2

REPORT INFORMATION
  Report Type: Spontaneous
  Country: US (occurrence: US)
  Receive Date: 20220414
  Receipt Date: 20220520
  Transmission Date: 20220721
  Serious: No
  Sender: FDA-Public Use
  Company Number: US-PFIZER INC-202200440556

PATIENT
  Age: 10 Year
  Sex: Female
  Weight: 28.58 kg

DRUGS (3)
  1. GENOTROPIN [Suspect]
     Active Substance: SOMATROPIN
     Dosage: 1.3, 6 DAYS A WEEK
  2. DAYTRANA [Concomitant]
     Active Substance: METHYLPHENIDATE
     Indication: Attention deficit hyperactivity disorder
     Dosage: UNK, DAILY (PATCH)
  3. GUANFACINE [Concomitant]
     Active Substance: GUANFACINE
     Indication: Attention deficit hyperactivity disorder
     Dosage: UNK, 2X/DAY (HALF A TABLET)

REACTIONS (3)
  - Device issue [Unknown]
  - Poor quality device used [Unknown]
  - Underdose [Unknown]
